FAERS Safety Report 15536491 (Version 5)
Quarter: 2023Q1

REPORT INFORMATION
  Report Type: Report from Study
  Country: FR (occurrence: FR)
  Receive Date: 20181022
  Receipt Date: 20230103
  Transmission Date: 20230417
  Serious: Yes (Life-Threatening, Hospitalization)
  Sender: FDA-Public Use
  Company Number: PHHO2018FR010999

PATIENT
  Age: 52 Year
  Sex: Female
  Weight: 62 kg

DRUGS (11)
  1. NILOTINIB [Suspect]
     Active Substance: NILOTINIB
     Indication: Acute lymphocytic leukaemia
     Dosage: 800 MG, UNK
     Route: 048
     Dates: start: 20180903, end: 20181201
  2. CYTARABINE [Concomitant]
     Active Substance: CYTARABINE
     Indication: Chemotherapy
     Dosage: 40 MG, UNK
     Route: 042
     Dates: start: 20180903, end: 20180917
  3. VINDESINE [Concomitant]
     Active Substance: VINDESINE
     Indication: Chemotherapy
     Dosage: 2 MG, UNK
     Route: 065
     Dates: start: 20180917, end: 20180924
  4. VINCRISTINE [Concomitant]
     Active Substance: VINCRISTINE
     Indication: Chemotherapy
     Dosage: 2 MG, UNK
     Route: 042
     Dates: start: 20180903, end: 20180910
  5. DEXAMETHASONE [Concomitant]
     Active Substance: DEXAMETHASONE
     Indication: Chemotherapy
     Dosage: 40 MG, UNK
     Route: 048
     Dates: start: 20180903, end: 20180925
  6. METHOTREXATE [Concomitant]
     Active Substance: METHOTREXATE
     Indication: Chemotherapy
     Dosage: 15 MG, UNK
     Route: 042
     Dates: start: 20180903, end: 20180917
  7. GRANULOCYTE COLONY-STIMULATING FACTOR NOS [Concomitant]
     Active Substance: GRANULOCYTE COLONY-STIMULATING FACTOR NOS
     Indication: Product used for unknown indication
     Dosage: UNK
     Route: 042
     Dates: start: 20180917, end: 20181001
  8. PREDNISONE [Concomitant]
     Active Substance: PREDNISONE
     Indication: Chemotherapy
     Dosage: 20 MG, UNK
     Route: 042
     Dates: start: 20180903, end: 20180917
  9. CILASTATIN SODIUM\IMIPENEM [Concomitant]
     Active Substance: CILASTATIN SODIUM\IMIPENEM
     Indication: Febrile convulsion
     Dosage: 1 G, TID
     Route: 042
     Dates: start: 20180927
  10. LINEZOLID [Concomitant]
     Active Substance: LINEZOLID
     Indication: Febrile convulsion
     Dosage: 600 MG, BID
     Route: 065
     Dates: start: 20180929
  11. VANCOCIN [Concomitant]
     Active Substance: VANCOMYCIN HYDROCHLORIDE
     Indication: Renal failure
     Dosage: UNK
     Route: 065

REACTIONS (8)
  - Subdural haematoma [Recovered/Resolved]
  - Acute respiratory distress syndrome [Unknown]
  - Mucosal inflammation [Recovered/Resolved with Sequelae]
  - General physical condition abnormal [Recovered/Resolved with Sequelae]
  - Cardio-respiratory arrest [Recovered/Resolved]
  - Atelectasis [Recovered/Resolved]
  - Febrile bone marrow aplasia [Recovered/Resolved]
  - Lung disorder [Recovered/Resolved]

NARRATIVE: CASE EVENT DATE: 20180924
